FAERS Safety Report 6024480-3 (Version None)
Quarter: 2008Q4

REPORT INFORMATION
  Report Type: 
  Country: None (occurrence: None)
  Receive Date: 20081231
  Receipt Date: 20080904
  Transmission Date: 20090506
  Serious: No
  Sender: FDA-Public Use
  Company Number: US-BRISTOL-MYERS SQUIBB COMPANY-14325187

PATIENT
  Age: 56 Year
  Sex: Female
  Weight: 78 kg

DRUGS (13)
  1. ORENCIA [Suspect]
     Indication: MIXED CONNECTIVE TISSUE DISEASE
     Dosage: 3 DOSAGE FORM=3 VIALS
     Dates: start: 20080701
  2. AGGRENOX [Concomitant]
     Indication: MIXED CONNECTIVE TISSUE DISEASE
     Dosage: 3 DOSAGE FORMS= 3 VIALS
     Dates: start: 20080701
  3. XANAX [Concomitant]
  4. NEURONTIN [Concomitant]
  5. PREDNISONE [Concomitant]
  6. CELEBREX [Concomitant]
  7. CARDIZEM [Concomitant]
  8. ADVAIR DISKUS 250/50 [Concomitant]
  9. PREVACID [Concomitant]
  10. FOLIC ACID [Concomitant]
  11. POTASSIUM CHLORIDE [Concomitant]
  12. TORSEMIDE [Concomitant]
  13. CARAFATE [Concomitant]

REACTIONS (1)
  - GINGIVAL PAIN [None]
